FAERS Safety Report 5210267-8 (Version None)
Quarter: 2007Q1

REPORT INFORMATION
  Report Type: 
  Country: None (occurrence: None)
  Receive Date: 20070116
  Receipt Date: 20070116
  Transmission Date: 20070707
  Serious: Yes (Hospitalization, Disabling)
  Sender: FDA-Public Use
  Company Number: None

PATIENT

DRUGS (2)
  1. BETAMETHASONE ACETATE [Suspect]
     Indication: HYPERSENSITIVITY
     Dates: start: 20061205, end: 20061207
  2. BETAMETHASONE ACETATE [Suspect]
     Indication: TENDONITIS
     Dates: start: 20061205, end: 20061207

REACTIONS (2)
  - ADVERSE EVENT [None]
  - PHARMACEUTICAL PRODUCT COMPLAINT [None]
